FAERS Safety Report 8388392-2 (Version None)
Quarter: 2012Q2

REPORT INFORMATION
  Report Type: 
  Country: None (occurrence: None)
  Receive Date: 20120525
  Receipt Date: 20120514
  Transmission Date: 20120825
  Serious: Yes (Hospitalization, Other)
  Sender: FDA-Public Use
  Company Number: CH-ELI_LILLY_AND_COMPANY-CH201205005606

PATIENT
  Age: 39 Year
  Sex: Male

DRUGS (7)
  1. VALIUM [Concomitant]
     Dosage: 10 MG, QD
     Dates: start: 20120404, end: 20120405
  2. ZYPREXA [Suspect]
     Dosage: 5 MG, QD
     Route: 048
     Dates: start: 20120407, end: 20120411
  3. ACETAMINOPHEN [Concomitant]
     Dosage: 500 MG, SINGLE
     Dates: start: 20120406
  4. ZYPREXA [Suspect]
     Dosage: 10 MG, QD
     Route: 048
     Dates: start: 20120412
  5. HALDOL [Concomitant]
     Dosage: 5 MG, SINGLE
     Route: 048
     Dates: start: 20120406
  6. ZYPREXA [Suspect]
     Dosage: 10 MG, QD
     Route: 048
     Dates: start: 20120405, end: 20120406
  7. VALIUM [Concomitant]
     Dosage: 10 MG, QD
     Route: 048
     Dates: start: 20120410, end: 20120410

REACTIONS (4)
  - MUSCLE SPASMS [None]
  - HYPOAESTHESIA [None]
  - VIITH NERVE PARALYSIS [None]
  - DYSKINESIA [None]
